FAERS Safety Report 5489554-4 (Version None)
Quarter: 2007Q4

REPORT INFORMATION
  Report Type: 
  Country: None (occurrence: None)
  Receive Date: 20071009
  Receipt Date: 20070511
  Transmission Date: 20080405
  Serious: Yes (Other)
  Sender: FDA-Public Use
  Company Number: PHEH2007US07344

PATIENT
  Age: 57 Year
  Sex: Female
  Weight: 79.4 kg

DRUGS (5)
  1. COMBIPATCH [Suspect]
     Indication: MENOPAUSE
     Dosage: 50/250MG, TOPICAL
     Route: 061
     Dates: start: 19990901, end: 20000701
  2. ESTRATAB [Suspect]
     Indication: MENOPAUSE
     Dosage: 0.625MG
     Dates: start: 19960101, end: 19990101
  3. FEMHRT [Suspect]
     Indication: MENOPAUSE
     Dates: start: 20000101, end: 20000101
  4. HORMONES(HORMONES) [Suspect]
     Indication: MENOPAUSE
     Dates: start: 19910101, end: 19920101
  5. SYNTHROID [Concomitant]

REACTIONS (17)
  - ANXIETY [None]
  - BREAST CANCER STAGE II [None]
  - BREAST MASS [None]
  - CELLULITIS [None]
  - CHEMOTHERAPY [None]
  - DEPRESSION [None]
  - DYSPAREUNIA [None]
  - HEPATIC CYST [None]
  - HYSTERECTOMY [None]
  - OSTEOPENIA [None]
  - OSTEOPOROSIS [None]
  - OVARIAN CYST [None]
  - RADIOTHERAPY [None]
  - SALPINGO-OOPHORECTOMY [None]
  - SKIN DISORDER [None]
  - SMEAR CERVIX ABNORMAL [None]
  - UTERINE LEIOMYOMA [None]
